FAERS Safety Report 8530714-3 (Version None)
Quarter: 2012Q3

REPORT INFORMATION
  Report Type: 
  Country: None (occurrence: None)
  Receive Date: 20120723
  Receipt Date: 20120712
  Transmission Date: 20120928
  Serious: Yes (Hospitalization)
  Sender: FDA-Public Use
  Company Number: US-ROCHE-1086349

PATIENT
  Sex: Male

DRUGS (7)
  1. AMBIEN [Concomitant]
     Indication: INSOMNIA
     Route: 048
     Dates: start: 20120326
  2. RIBAVIRIN [Concomitant]
     Indication: HEPATITIS C
     Route: 048
     Dates: start: 20120321
  3. PEGASYS [Suspect]
     Indication: HEPATITIS C
     Route: 058
     Dates: start: 20120321
  4. PRILOSEC OTC [Concomitant]
     Indication: GASTROOESOPHAGEAL REFLUX DISEASE
     Route: 048
     Dates: start: 20120321
  5. BISOPROLOL FUMARATE [Concomitant]
     Route: 048
  6. PLAVIX [Concomitant]
     Route: 048
  7. TRAMADOL HYDROCHLORIDE [Concomitant]
     Dates: start: 20120705

REACTIONS (1)
  - SYNCOPE [None]
